FAERS Safety Report 5857684-0 (Version None)
Quarter: 2008Q3

REPORT INFORMATION
  Report Type: 
  Country: None (occurrence: None)
  Receive Date: 20080826
  Receipt Date: 20080429
  Transmission Date: 20090109
  Serious: No
  Sender: FDA-Public Use
  Company Number: US-BAYER-200822196NA

PATIENT
  Age: 25 Year
  Sex: Female
  Weight: 42 kg

DRUGS (1)
  1. YASMIN [Suspect]
     Indication: ENDOMETRIOSIS
     Route: 048
     Dates: start: 20080413, end: 20080425

REACTIONS (1)
  - NAUSEA [None]
